FAERS Safety Report 9341819 (Version 1)
Quarter: 2013Q2

REPORT INFORMATION
  Report Type: Spontaneous
  Country: US (occurrence: US)
  Receive Date: 20130611
  Receipt Date: 20130611
  Transmission Date: 20140414
  Serious: No
  Sender: FDA-Public Use
  Company Number: US-TEVA-411243USA

PATIENT
  Age: 30 Year
  Sex: Male
  Weight: 63.56 kg

DRUGS (3)
  1. COPAXONE [Suspect]
     Indication: MULTIPLE SCLEROSIS
     Dates: start: 20130101
  2. TOPAMAX [Concomitant]
     Indication: MIGRAINE
     Dosage: BID
  3. CELEBREX [Concomitant]
     Indication: CHEST PAIN
     Dosage: QD

REACTIONS (3)
  - Chest pain [Recovered/Resolved]
  - Blood creatine phosphokinase increased [Unknown]
  - Alanine aminotransferase increased [Unknown]
